FAERS Safety Report 12076927 (Version 6)
Quarter: 2016Q3

REPORT INFORMATION
  Report Type: Report from Study
  Country: US (occurrence: US)
  Receive Date: 20160215
  Receipt Date: 20160728
  Transmission Date: 20161109
  Serious: Yes (Hospitalization)
  Sender: FDA-Public Use
  Company Number: US-BAYER-2016-008089

PATIENT
  Age: 73 Year
  Sex: Male
  Weight: 102.49 kg

DRUGS (7)
  1. ADEMPAS [Suspect]
     Active Substance: RIOCIGUAT
     Indication: PULMONARY ARTERIAL HYPERTENSION
     Dosage: UNK
     Dates: start: 20150721
  2. ADEMPAS [Suspect]
     Active Substance: RIOCIGUAT
     Indication: PULMONARY ARTERIAL HYPERTENSION
     Dosage: 2.5 MG, TID
     Route: 048
  3. ADEMPAS [Suspect]
     Active Substance: RIOCIGUAT
     Indication: PULMONARY ARTERIAL HYPERTENSION
     Dosage: 1.5 MG, TID
     Route: 048
  4. ADEMPAS [Suspect]
     Active Substance: RIOCIGUAT
     Indication: PULMONARY ARTERIAL HYPERTENSION
     Dosage: 2 MG, TID
     Route: 048
  5. ADEMPAS [Suspect]
     Active Substance: RIOCIGUAT
     Indication: PULMONARY ARTERIAL HYPERTENSION
     Dosage: 2.5 MG, TID
     Route: 048
  6. ADEMPAS [Suspect]
     Active Substance: RIOCIGUAT
     Indication: PULMONARY ARTERIAL HYPERTENSION
     Dosage: 2 MG, UNK
     Route: 048
  7. OPSUMIT [Concomitant]
     Active Substance: MACITENTAN

REACTIONS (22)
  - Limb discomfort [None]
  - Constipation [Unknown]
  - Abdominal pain upper [Unknown]
  - Nausea [None]
  - Gastric disorder [None]
  - Vomiting [Unknown]
  - Dysgeusia [None]
  - Abdominal distension [Unknown]
  - Nausea [None]
  - Muscular weakness [Unknown]
  - Pain in extremity [Unknown]
  - Malaise [None]
  - Back pain [Unknown]
  - Pneumonia [Unknown]
  - Diverticulitis [None]
  - Abdominal pain [None]
  - Gastrointestinal disorder [None]
  - Diverticulum [Unknown]
  - Dysgeusia [None]
  - Abdominal distension [Unknown]
  - Gastrointestinal motility disorder [Unknown]
  - Flatulence [None]

NARRATIVE: CASE EVENT DATE: 20160204
